FAERS Safety Report 8394962 (Version 3)
Quarter: 2012Q4

REPORT INFORMATION
  Report Type: 
  Country: US (occurrence: US)
  Receive Date: 20120208
  Receipt Date: 20120907
  Transmission Date: 20130627
  Serious: Yes (Hospitalization, Other)
  Sender: FDA-Public Use
  Company Number: US-BAYER-2012-010981

PATIENT
  Age: 20 Year
  Sex: Female
  Weight: 54.42 kg

DRUGS (1)
  1. YAZ [Suspect]
     Indication: ACNE
     Dosage: UNK
     Dates: start: 20090401, end: 20090424

REACTIONS (6)
  - Deep vein thrombosis [Recovered/Resolved]
  - Thrombosis [None]
  - Thrombophlebitis superficial [None]
  - Liver disorder [None]
  - Injury [Recovered/Resolved]
  - Deep vein thrombosis [None]
